FAERS Safety Report 4998854-3 (Version None)
Quarter: 2006Q2

REPORT INFORMATION
  Report Type: 
  Country: None (occurrence: None)
  Receive Date: 20060510
  Receipt Date: 20050829
  Transmission Date: 20061013
  Serious: Yes (Hospitalization, Disabling)
  Sender: FDA-Public Use
  Company Number: US-MERCK-0508USA04647

PATIENT
  Age: 37 Year
  Sex: Female
  Weight: 113 kg

DRUGS (1)
  1. VIOXX [Suspect]
     Indication: BACK PAIN
     Route: 048
     Dates: start: 20000724, end: 20020107

REACTIONS (13)
  - CARDIOMEGALY [None]
  - CARPAL TUNNEL SYNDROME [None]
  - CHEST PAIN [None]
  - DEEP VEIN THROMBOSIS [None]
  - DIABETES MELLITUS NON-INSULIN-DEPENDENT [None]
  - DYSPNOEA [None]
  - FLANK PAIN [None]
  - HYPERTENSION [None]
  - MASS [None]
  - MYOFASCIAL PAIN SYNDROME [None]
  - PULMONARY CONGESTION [None]
  - SLEEP APNOEA SYNDROME [None]
  - UTERINE DISORDER [None]
